FAERS Safety Report 7560475-6 (Version None)
Quarter: 2011Q2

REPORT INFORMATION
  Report Type: 
  Country: None (occurrence: None)
  Receive Date: 20110621
  Receipt Date: 20110613
  Transmission Date: 20111010
  Serious: Yes (Hospitalization)
  Sender: FDA-Public Use
  Company Number: HU-BRISTOL-MYERS SQUIBB COMPANY-14599401

PATIENT
  Age: 84 Year
  Sex: Female

DRUGS (4)
  1. ASPIRIN [Concomitant]
     Dosage: TAKEN ON 07JAN2009
     Dates: start: 20081220, end: 20090419
  2. RANITIDINE [Concomitant]
     Dates: start: 20081201
  3. PLACEBO [Suspect]
     Indication: THROMBOSIS PROPHYLAXIS
     Dosage: STOPPED 20APR09 WITH APIXABAN WARFARIN INTERP:19APR09 RESTART:APIXABAN:20APR09 WARFARIN:27APR09
     Route: 048
     Dates: start: 20090326
  4. WARFARIN SODIUM [Suspect]
     Indication: THROMBOSIS PROPHYLAXIS
     Dosage: 1 DOSAGE FORM =DOSE BASED ON INR INTERRUPTED ON 19APR09; RESTARTED ON 27APR09 AS NEEDED- CONT
     Route: 048
     Dates: start: 20090326

REACTIONS (1)
  - HAEMORRHAGIC EROSIVE GASTRITIS [None]
